FAERS Safety Report 19315588 (Version 1)
Quarter: 2021Q2

REPORT INFORMATION
  Report Type: Spontaneous
  Country: JP (occurrence: JP)
  Receive Date: 20210527
  Receipt Date: 20210527
  Transmission Date: 20210717
  Serious: Yes (Hospitalization, Other)
  Sender: FDA-Public Use
  Company Number: JP-SAKK-2021SA172140AA

PATIENT
  Age: 65 Year
  Sex: Female
  Weight: 44.1 kg

DRUGS (13)
  1. TACROLIMUS MONOHYDRATE [Concomitant]
     Active Substance: TACROLIMUS
     Dosage: UNK
     Route: 065
  2. PREDNISOLONE. [Concomitant]
     Active Substance: PREDNISOLONE
     Dosage: 5 MG/DAY
     Route: 065
  3. METHYLPREDNISOLONE. [Concomitant]
     Active Substance: METHYLPREDNISOLONE
     Dosage: 2 MG/KG
     Route: 065
  4. TACROLIMUS MONOHYDRATE [Concomitant]
     Active Substance: TACROLIMUS
     Indication: PROPHYLAXIS AGAINST GRAFT VERSUS HOST DISEASE
     Route: 065
  5. PREDNISOLONE. [Concomitant]
     Active Substance: PREDNISOLONE
     Indication: GRAFT VERSUS HOST DISEASE
     Dosage: 1 MG/KG
     Route: 065
  6. REMESTEMCEL?L. [Concomitant]
     Active Substance: REMESTEMCEL-L
     Dosage: ADDITIONALLY INFUSED FOR A TOTAL OF 8 TIMES BETWEEN DAY 253 AND 278
     Route: 065
  7. REMESTEMCEL?L. [Concomitant]
     Active Substance: REMESTEMCEL-L
     Indication: GRAFT VERSUS HOST DISEASE
     Dosage: A TOTAL OF 8 TIMES BETWEEN DAY 154 AND 180
     Route: 065
  8. PREDNISOLONE. [Concomitant]
     Active Substance: PREDNISOLONE
     Dosage: 10 MG/DAY
     Route: 065
  9. THYMOGLOBULINE [Suspect]
     Active Substance: LAPINE T-LYMPHOCYTE IMMUNE GLOBULIN
     Indication: BONE MARROW CONDITIONING REGIMEN
     Dosage: 1.25 MG/KG
     Route: 041
  10. METHYLPREDNISOLONE. [Concomitant]
     Active Substance: METHYLPREDNISOLONE
     Indication: GRAFT VERSUS HOST DISEASE
     Dosage: 0.5 MG/KG
     Route: 065
  11. METHYLPREDNISOLONE. [Concomitant]
     Active Substance: METHYLPREDNISOLONE
     Indication: HAEMOPHAGOCYTIC LYMPHOHISTIOCYTOSIS
     Dosage: 2 MG/KG
     Route: 065
  12. ACICLOVIR [Concomitant]
     Active Substance: ACYCLOVIR
     Indication: ANTIVIRAL PROPHYLAXIS
     Route: 048
  13. METHOTREXATE. [Concomitant]
     Active Substance: METHOTREXATE
     Indication: PROPHYLAXIS AGAINST GRAFT VERSUS HOST DISEASE
     Dosage: DAY 1: 10 MG/M2, DAY 3, 6, 11: 7 MG/M2
     Route: 065

REACTIONS (18)
  - Haemophagocytic lymphohistiocytosis [Recovering/Resolving]
  - Dysuria [Recovered/Resolved]
  - Meningitis [Unknown]
  - Disorientation [Unknown]
  - Asthenia [Unknown]
  - Adenovirus infection [Recovered/Resolved]
  - General physical health deterioration [Unknown]
  - Postrenal failure [Recovering/Resolving]
  - Viral haemorrhagic cystitis [Recovered/Resolved]
  - Bladder irritation [Recovered/Resolved]
  - Abdominal tenderness [Recovered/Resolved]
  - Abdominal pain [Recovered/Resolved]
  - Haematuria [Recovered/Resolved]
  - Diarrhoea [Recovered/Resolved]
  - Pigmentation disorder [Unknown]
  - Urinary retention [Recovered/Resolved]
  - Depressed level of consciousness [Recovering/Resolving]
  - Pyrexia [Recovered/Resolved]
